FAERS Safety Report 10149962 (Version 1)
Quarter: 2014Q2

REPORT INFORMATION
  Report Type: Spontaneous
  Country: GB (occurrence: GB)
  Receive Date: 20140502
  Receipt Date: 20140502
  Transmission Date: 20141212
  Serious: Yes (Other)
  Sender: FDA-Public Use
  Company Number: GB-GALDERMA-GB14001508

PATIENT
  Age: 49 Year
  Sex: Female
  Weight: 71 kg

DRUGS (15)
  1. DOXYCYCLINE [Suspect]
     Dates: start: 20140407
  2. AMOXICILLIN [Concomitant]
     Dates: start: 20140407
  3. ACLIDINIUM [Concomitant]
     Dates: start: 20140224
  4. BUDESONIDE [Concomitant]
     Dates: start: 20140124
  5. DEPO-PROVERA [Concomitant]
     Dates: start: 20140224, end: 20140225
  6. MEDROXYPROGESTERONE ACETATE [Concomitant]
     Dates: start: 20131202, end: 20140224
  7. OMEPRAZOLE [Concomitant]
     Dates: start: 20131125, end: 20140212
  8. PHYLLOCONTIN CONTINUS [Concomitant]
     Dates: start: 20140224, end: 20140317
  9. PREDNISOLONE [Concomitant]
     Dates: start: 20140407
  10. PREDNISOLONE [Concomitant]
     Dates: start: 20140224, end: 20140225
  11. SALBUTAMOL [Concomitant]
     Dates: start: 20140407
  12. TERBUTALINE [Concomitant]
     Dates: start: 20140407
  13. TIOTROPIUM [Concomitant]
     Dates: start: 20131111, end: 20140209
  14. AMLODIPINE [Concomitant]
     Dates: start: 20131111
  15. SIMVASTATIN [Concomitant]
     Dates: start: 20131111

REACTIONS (1)
  - Vomiting [Unknown]
